FAERS Safety Report 5352139-4 (Version None)
Quarter: 2007Q2

REPORT INFORMATION
  Report Type: 
  Country: None (occurrence: None)
  Receive Date: 20070606
  Receipt Date: 20070529
  Transmission Date: 20071010
  Serious: Yes (Other)
  Sender: FDA-Public Use
  Company Number: 2007SP010529

PATIENT
  Age: 9 Year
  Sex: Male

DRUGS (1)
  1. AERIUS (DESLORATADINE) (DESLORATADINE) [Suspect]
     Indication: RHINITIS
     Dosage: SEE IMAGE
     Route: 048
     Dates: start: 20060101, end: 20060101

REACTIONS (1)
  - ELECTROCARDIOGRAM QT CORRECTED INTERVAL PROLONGED [None]
